FAERS Safety Report 5300474-8 (Version None)
Quarter: 2007Q2

REPORT INFORMATION
  Report Type: 
  Country: None (occurrence: None)
  Receive Date: 20070413
  Receipt Date: 20070413
  Transmission Date: 20071010
  Serious: Yes (Hospitalization)
  Sender: FDA-Public Use
  Company Number: None

PATIENT
  Age: 61 Year
  Sex: Male
  Weight: 126 kg

DRUGS (13)
  1. WARFARIN SODIUM [Suspect]
     Indication: ATRIAL FLUTTER
     Dosage: 12.5MG/10MG TUES+THUR/ROW PO
     Route: 048
     Dates: start: 20060721, end: 20061114
  2. WARFARIN SODIUM [Suspect]
     Indication: CORONARY ARTERY BYPASS
     Dosage: 12.5MG/10MG TUES+THUR/ROW PO
     Route: 048
     Dates: start: 20060721, end: 20061114
  3. WARFARIN SODIUM [Suspect]
     Indication: CORONARY ARTERY DISEASE
     Dosage: 12.5MG/10MG TUES+THUR/ROW PO
     Route: 048
     Dates: start: 20060721, end: 20061114
  4. WARFARIN SODIUM [Suspect]
     Indication: PERIPHERAL VASCULAR DISORDER
     Dosage: 12.5MG/10MG TUES+THUR/ROW PO
     Route: 048
     Dates: start: 20060721, end: 20061114
  5. ASPIRIN [Concomitant]
  6. DILTIAZEM [Concomitant]
  7. NPH ILETIN II [Concomitant]
  8. REGULAR INSULIN [Concomitant]
  9. LISINOPRIL [Concomitant]
  10. METFORMIN HCL [Concomitant]
  11. NIACIN [Concomitant]
  12. NICOTINE [Concomitant]
  13. SIMVASTATIN [Concomitant]

REACTIONS (6)
  - ASTHENIA [None]
  - BLOOD PRESSURE DIASTOLIC DECREASED [None]
  - DIZZINESS EXERTIONAL [None]
  - FAECES DISCOLOURED [None]
  - FATIGUE [None]
  - HYPERSOMNIA [None]
